FAERS Safety Report 13486085 (Version 1)
Quarter: 2017Q2

REPORT INFORMATION
  Report Type: Spontaneous
  Country: US (occurrence: US)
  Receive Date: 20170426
  Receipt Date: 20170426
  Transmission Date: 20170830
  Serious: Yes (Hospitalization)
  Sender: FDA-Public Use
  Company Number: None

PATIENT
  Age: 58 Year
  Sex: Female
  Weight: 71.1 kg

DRUGS (3)
  1. ZOLOFT [Suspect]
     Active Substance: SERTRALINE HYDROCHLORIDE
     Indication: DEPRESSION
     Dates: start: 20110411, end: 20161013
  2. CALCIUM W/ D2 [Concomitant]
  3. L-LYSINE [Concomitant]
     Active Substance: LYSINE

REACTIONS (3)
  - Headache [None]
  - Inappropriate antidiuretic hormone secretion [None]
  - Asthenia [None]

NARRATIVE: CASE EVENT DATE: 20160915
